FAERS Safety Report 4630167-1 (Version None)
Quarter: 2005Q2

REPORT INFORMATION
  Report Type: 
  Country: None (occurrence: None)
  Receive Date: 20050406
  Receipt Date: 20050321
  Transmission Date: 20051028
  Serious: Yes (Hospitalization)
  Sender: FDA-Public Use
  Company Number: 10668

PATIENT

DRUGS (1)
  1. AMIODARONE HCL [Suspect]
     Dosage: 200 MG

REACTIONS (3)
  - ATRIAL FIBRILLATION [None]
  - DRUG INEFFECTIVE [None]
  - HEPATORENAL FAILURE [None]
